FAERS Safety Report 8458128-5 (Version None)
Quarter: 2012Q2

REPORT INFORMATION
  Report Type: 
  Country: None (occurrence: None)
  Receive Date: 20120323
  Receipt Date: 20111123
  Transmission Date: 20120825
  Serious: Yes (Hospitalization, Other)
  Sender: FDA-Public Use
  Company Number: 163-21880-11102946

PATIENT
  Age: 71 Year
  Sex: Male
  Weight: 72 kg

DRUGS (21)
  1. GABAPENTIN [Concomitant]
  2. LEVOTHYROXINE [Concomitant]
  3. COLCHICINE [Concomitant]
  4. ASPIRIN [Concomitant]
  5. NON-REBREATHER MASK (OXYGEN) [Concomitant]
  6. POTASSIUM ACETATE [Concomitant]
  7. HEPARIN [Suspect]
     Indication: PROPHYLAXIS
     Dates: start: 20111001
  8. MOXIFLOXACIN [Concomitant]
  9. ANTICOAGULANT (WARFARIN SODIUM) [Concomitant]
  10. ALBUTEROL SULFATE [Concomitant]
  11. SERTRALINE HYDROCHLORIDE [Concomitant]
  12. MIDODRINE HYDROCHLORIDE [Concomitant]
  13. FOLIC ACID [Concomitant]
  14. REVLIMID [Suspect]
     Indication: MULTIPLE MYELOMA
     Dosage: 10 MG, 1 IN 1 D, PO : 5 MG, 1 IN 1 D, PO
     Route: 048
     Dates: start: 20110803
  15. REVLIMID [Suspect]
     Indication: MULTIPLE MYELOMA
     Dosage: 10 MG, 1 IN 1 D, PO : 5 MG, 1 IN 1 D, PO
     Route: 048
     Dates: start: 20111001
  16. OMEPRAZOLE [Concomitant]
  17. FLUDROCORTISONE ACETATE [Concomitant]
  18. CHEMOTHERAPY (CHEMOTHERAPEUTICS NOS) [Concomitant]
  19. TIOTROPIUM BROMIDE [Concomitant]
  20. PRAVASTATIN [Concomitant]
  21. DILTIAZEM HCL [Concomitant]

REACTIONS (2)
  - PNEUMONIA [None]
  - CARDIAC FAILURE CONGESTIVE [None]
